FAERS Safety Report 6960228-3 (Version None)
Quarter: 2010Q3

REPORT INFORMATION
  Report Type: 
  Country: None (occurrence: None)
  Receive Date: 20100901
  Receipt Date: 20100823
  Transmission Date: 20110219
  Serious: Yes (Death)
  Sender: FDA-Public Use
  Company Number: US-SANOFI-AVENTIS-2010SA050766

PATIENT
  Age: 36 Year
  Sex: Male

DRUGS (3)
  1. AMBIEN [Suspect]
     Route: 065
  2. HYDROCODONE [Suspect]
     Route: 065
  3. OPIOIDS [Suspect]
     Route: 065

REACTIONS (3)
  - COMPLETED SUICIDE [None]
  - DRUG LEVEL ABOVE THERAPEUTIC [None]
  - GUN SHOT WOUND [None]
